FAERS Safety Report 25461766 (Version 1)
Quarter: 2025Q2

REPORT INFORMATION
  Report Type: Spontaneous
  Country: US (occurrence: None)
  Receive Date: 20250619
  Receipt Date: 20250619
  Transmission Date: 20250716
  Serious: Yes (Disabling)
  Sender: FDA-CTU
  Company Number: None

PATIENT
  Age: 23 Year
  Sex: Female
  Weight: 54 kg

DRUGS (1)
  1. LEXAPRO [Suspect]
     Active Substance: ESCITALOPRAM OXALATE
     Indication: Depression
     Dates: start: 20211201, end: 20250619

REACTIONS (14)
  - Alopecia [None]
  - Headache [None]
  - Vomiting [None]
  - Hot flush [None]
  - Mood swings [None]
  - Tremor [None]
  - Abnormal dreams [None]
  - Cognitive disorder [None]
  - Feeling jittery [None]
  - Photosensitivity reaction [None]
  - Hyperacusis [None]
  - Memory impairment [None]
  - Appetite disorder [None]
  - Somnolence [None]

NARRATIVE: CASE EVENT DATE: 20241029
